FAERS Safety Report 10182725 (Version 3)
Quarter: 2014Q4

REPORT INFORMATION
  Report Type: Spontaneous
  Country: US (occurrence: None)
  Receive Date: 20140516
  Receipt Date: 20141114
  Transmission Date: 20150528
  Serious: Yes (Hospitalization, Other)
  Sender: FDA-Public Use
  Company Number: UNT-2014-000100

PATIENT
  Age: 55 Year
  Sex: Female
  Weight: 74.8 kg

DRUGS (2)
  1. REMODULIN [Suspect]
     Active Substance: TREPROSTINIL
     Indication: PULMONARY ARTERIAL HYPERTENSION
     Dosage: 0.005 UG/KG, CONTINUING, SUBCUTANEOUS
     Route: 058
     Dates: start: 20140426
  2. ADCIRCA [Concomitant]
     Active Substance: TADALAFIL

REACTIONS (2)
  - Right ventricular failure [None]
  - Loss of consciousness [None]

NARRATIVE: CASE EVENT DATE: 20140502
